FAERS Safety Report 5510670-2 (Version None)
Quarter: 2007Q4

REPORT INFORMATION
  Report Type: 
  Country: None (occurrence: None)
  Receive Date: 20071108
  Receipt Date: 20071108
  Transmission Date: 20080405
  Serious: Yes (Disabling)
  Sender: FDA-Public Use
  Company Number: A0692440A

PATIENT
  Age: 40 Year
  Sex: Female

DRUGS (6)
  1. ALLI [Suspect]
     Route: 048
  2. PROZAC [Concomitant]
  3. LOVASTATIN [Concomitant]
  4. SYNTHROID [Concomitant]
  5. MULTI-VITAMIN [Concomitant]
  6. PERCOCET [Concomitant]

REACTIONS (2)
  - DRUG INEFFECTIVE [None]
  - HYPOTHYROIDISM [None]
